FAERS Safety Report 6330020-1 (Version None)
Quarter: 2009Q3

REPORT INFORMATION
  Report Type: 
  Country: None (occurrence: None)
  Receive Date: 20090825
  Receipt Date: 20090819
  Transmission Date: 20100115
  Serious: Yes (Hospitalization)
  Sender: FDA-Public Use
  Company Number: 2009SP007877

PATIENT
  Age: 65 Year
  Sex: Female
  Weight: 49 kg

DRUGS (18)
  1. TEMOZOLOMIDE [Suspect]
     Indication: METASTATIC MALIGNANT MELANOMA
     Dosage: 200 MG/M2; QD; PO
     Route: 048
     Dates: start: 20090218, end: 20090321
  2. ABT-888 (INVESTIGATIONAL DRUG) [Suspect]
     Indication: METASTATIC MALIGNANT MELANOMA
     Dosage: 40 MG; BID; PO, 40 MG; QD
     Route: 048
     Dates: start: 20090218, end: 20090224
  3. ABT-888 (INVESTIGATIONAL DRUG) [Suspect]
     Indication: METASTATIC MALIGNANT MELANOMA
     Dosage: 40 MG; BID; PO, 40 MG; QD
     Route: 048
     Dates: start: 20090318
  4. LEVOTHYROXINE SODIUM [Concomitant]
  5. RISEDRONATE SODIUM [Concomitant]
  6. IBUPROFEN [Concomitant]
  7. METHOCARBAMOL [Concomitant]
  8. VICODIN [Concomitant]
  9. CALCIUM CARBONATE [Concomitant]
  10. LORAZEPAM [Concomitant]
  11. SENNA ALEXANDRINA [Concomitant]
  12. DOCUSATE SODIUM [Concomitant]
  13. HYDROCHLOROTHIAZIDE [Concomitant]
  14. NORGESIC [Concomitant]
  15. DEXAMETHASONE [Concomitant]
  16. ONDANSETRON [Concomitant]
  17. PARACETAMOL [Concomitant]
  18. METOCLOPRAMIDE [Concomitant]

REACTIONS (5)
  - DEHYDRATION [None]
  - HAEMOGLOBIN DECREASED [None]
  - NAUSEA [None]
  - NEUTROPENIA [None]
  - VOMITING [None]
